FAERS Safety Report 25845929 (Version 1)
Quarter: 2025Q3

REPORT INFORMATION
  Report Type: Spontaneous
  Country: CA (occurrence: CA)
  Receive Date: 20250925
  Receipt Date: 20250925
  Transmission Date: 20251020
  Serious: Yes (Other)
  Sender: AUROBINDO
  Company Number: CA-AUROBINDO-AUR-APL-2025-048161

PATIENT
  Age: 35 Year
  Sex: Female

DRUGS (2)
  1. TRANEXAMIC ACID [Suspect]
     Active Substance: TRANEXAMIC ACID
     Indication: Genital haemorrhage
     Route: 065
  2. MIRENA [Suspect]
     Active Substance: LEVONORGESTREL
     Indication: Heavy menstrual bleeding
     Dosage: 20 MICROGRAM, ONCE A DAY (FORMULATION:INSERT (EXTENDED- RELEASE)
     Route: 015

REACTIONS (5)
  - Haemorrhage [Unknown]
  - Genital haemorrhage [Recovering/Resolving]
  - Off label use [Unknown]
  - Product use in unapproved indication [Unknown]
  - Device expulsion [Recovering/Resolving]
